FAERS Safety Report 7456500-3 (Version None)
Quarter: 2011Q2

REPORT INFORMATION
  Report Type: 
  Country: None (occurrence: None)
  Receive Date: 20110503
  Receipt Date: 20110419
  Transmission Date: 20111010
  Serious: Yes (Other)
  Sender: FDA-Public Use
  Company Number: BR-GENENTECH-317600

PATIENT
  Sex: Female
  Weight: 62 kg

DRUGS (3)
  1. RITUXIMAB [Suspect]
     Indication: PRODUCT USED FOR UNKNOWN INDICATION
     Dosage: UNK
     Route: 006
     Dates: start: 20100701, end: 20100801
  2. METHOTREXATE [Concomitant]
     Dosage: .8 MG, UNK
  3. PREDSIM [Concomitant]
     Indication: PRODUCT USED FOR UNKNOWN INDICATION
     Dosage: 5 MG, UNK

REACTIONS (2)
  - HEPATITIS [None]
  - PANCREATITIS [None]
